FAERS Safety Report 11317961 (Version 1)
Quarter: 2015Q3

REPORT INFORMATION
  Report Type: Spontaneous
  Country: JP (occurrence: JP)
  Receive Date: 20150728
  Receipt Date: 20150728
  Transmission Date: 20151125
  Serious: Yes (Death, Other)
  Sender: FDA-Public Use
  Company Number: JP-ELI_LILLY_AND_COMPANY-JP201507008080

PATIENT
  Age: 64 Year
  Sex: Female

DRUGS (2)
  1. ERLOTINIB HYDROCHLORIDE. [Suspect]
     Active Substance: ERLOTINIB HYDROCHLORIDE
     Indication: PANCREATIC CARCINOMA STAGE IV
     Dosage: UNK
     Route: 065
     Dates: start: 201203, end: 201312
  2. GEMZAR [Suspect]
     Active Substance: GEMCITABINE HYDROCHLORIDE
     Indication: PANCREATIC CARCINOMA STAGE IV
     Dosage: UNK
     Route: 042
     Dates: start: 201203

REACTIONS (7)
  - Decreased appetite [Unknown]
  - Pneumonia bacterial [Unknown]
  - Rash [Unknown]
  - Neutrophil count decreased [Unknown]
  - Cell marker increased [Unknown]
  - Malignant neoplasm progression [Fatal]
  - Cerebral infarction [Fatal]

NARRATIVE: CASE EVENT DATE: 201305
